FAERS Safety Report 16510007 (Version 1)
Quarter: 2019Q3

REPORT INFORMATION
  Report Type: Spontaneous
  Country: JP (occurrence: JP)
  Receive Date: 20190702
  Receipt Date: 20190702
  Transmission Date: 20191004
  Serious: Yes (Disabling, Other)
  Sender: FDA-Public Use
  Company Number: JP-SUN PHARMACEUTICAL INDUSTRIES LTD-2019R1-212478

PATIENT
  Age: 10 Year
  Sex: Female
  Weight: 37.6 kg

DRUGS (2)
  1. ISOTRETINOIN. [Suspect]
     Active Substance: ISOTRETINOIN
     Indication: NEUROBLASTOMA
     Dosage: 120 MILLIGRAM, DAILY
     Route: 048
  2. ISOTRETINOIN. [Suspect]
     Active Substance: ISOTRETINOIN
     Dosage: 40 MILLIGRAM, DAILY (ON FIRST ADMISSION)
     Route: 048

REACTIONS (2)
  - Epiphyses premature fusion [Recovered/Resolved]
  - Knee deformity [Recovered/Resolved]
